FAERS Safety Report 7504846-2 (Version None)
Quarter: 2011Q2

REPORT INFORMATION
  Report Type: 
  Country: None (occurrence: None)
  Receive Date: 20110526
  Receipt Date: 20110518
  Transmission Date: 20111010
  Serious: Yes (Death, Hospitalization)
  Sender: FDA-Public Use
  Company Number: BR-BRISTOL-MYERS SQUIBB COMPANY-15760416

PATIENT
  Sex: Male

DRUGS (1)
  1. BARACLUDE [Suspect]
     Dosage: STUDY DRUG UNTIL 23AUG10,AFTER THAT DATE,STARTED RECEIVING MARKETED BARACLUDE
     Route: 048

REACTIONS (1)
  - HEPATIC NEOPLASM [None]
